FAERS Safety Report 5123872-4 (Version None)
Quarter: 2006Q4

REPORT INFORMATION
  Report Type: 
  Country: None (occurrence: None)
  Receive Date: 20061010
  Receipt Date: 20061003
  Transmission Date: 20070319
  Serious: Yes (Hospitalization)
  Sender: FDA-Public Use
  Company Number: FR-GLAXOSMITHKLINE-B0441319A

PATIENT
  Age: 74 Year
  Sex: Female

DRUGS (2)
  1. CEFUROXIME [Suspect]
     Route: 048
     Dates: start: 20060803, end: 20060805
  2. TETAVAX [Concomitant]
     Route: 065
     Dates: start: 20060802, end: 20060802

REACTIONS (2)
  - LEUKOCYTOCLASTIC VASCULITIS [None]
  - PURPURA [None]
